FAERS Safety Report 4359677-1 (Version None)
Quarter: 2004Q2

REPORT INFORMATION
  Report Type: 
  Country: None (occurrence: None)
  Receive Date: 20040513
  Receipt Date: 20040504
  Transmission Date: 20050107
  Serious: Yes (Life-Threatening)
  Sender: FDA-Public Use
  Company Number: 2004212046GB

PATIENT
  Age: 35 Year
  Sex: Female
  Weight: 49.9 kg

DRUGS (3)
  1. NICORETTE [Suspect]
     Indication: SMOKING CESSATION THERAPY
     Dosage: 10 MG, TRANSDERMAL
     Route: 062
     Dates: start: 20040330, end: 20040401
  2. EFFEXOR [Concomitant]
  3. ORLISTAT (ORLISTAT) [Concomitant]

REACTIONS (3)
  - ANAPHYLACTIC REACTION [None]
  - LOCALISED SKIN REACTION [None]
  - URTICARIA GENERALISED [None]
